FAERS Safety Report 24416118 (Version 1)
Quarter: 2024Q4

REPORT INFORMATION
  Report Type: Spontaneous
  Country: US (occurrence: US)
  Receive Date: 20241009
  Receipt Date: 20241009
  Transmission Date: 20250115
  Serious: Yes (Life-Threatening, Hospitalization, Other)
  Sender: DR REDDYS
  Company Number: None

PATIENT
  Age: 51 Year
  Sex: Female

DRUGS (1)
  1. ALLOPURINOL [Suspect]
     Active Substance: ALLOPURINOL
     Indication: Product used for unknown indication

REACTIONS (7)
  - Shock [Unknown]
  - Drug reaction with eosinophilia and systemic symptoms [Unknown]
  - Hypertransaminasaemia [Unknown]
  - Vocal cord paralysis [Unknown]
  - Acute kidney injury [Unknown]
  - Hepatic enzyme increased [Unknown]
  - Lymphocytosis [Unknown]
